FAERS Safety Report 11093692 (Version 3)
Quarter: 2015Q2

REPORT INFORMATION
  Report Type: Spontaneous
  Country: KR (occurrence: KR)
  Receive Date: 20150506
  Receipt Date: 20150604
  Transmission Date: 20150821
  Serious: Yes (Hospitalization)
  Sender: FDA-Public Use
  Company Number: KR-ABBVIE-15P-286-1385437-00

PATIENT
  Age: 34 Year
  Sex: Female

DRUGS (9)
  1. SODIUM VALPROATE [Suspect]
     Active Substance: VALPROATE SODIUM
     Dosage: INCREASED THE NEXT DAY
     Route: 048
  2. LITHIUM. [Concomitant]
     Active Substance: LITHIUM
     Indication: MANIA
     Route: 065
  3. PALLIPERIDONE [Concomitant]
     Indication: MANIA
     Route: 065
  4. LITHIUM. [Concomitant]
     Active Substance: LITHIUM
     Route: 065
  5. ARIPIPRAZOLE. [Concomitant]
     Active Substance: ARIPIPRAZOLE
     Indication: MANIA
  6. OLANZAPINE. [Concomitant]
     Active Substance: OLANZAPINE
     Dosage: DOSE DECREASED
     Route: 065
  7. SODIUM VALPROATE [Suspect]
     Active Substance: VALPROATE SODIUM
     Indication: BIPOLAR DISORDER
     Route: 048
  8. LITHIUM. [Concomitant]
     Active Substance: LITHIUM
     Route: 065
  9. OLANZAPINE. [Concomitant]
     Active Substance: OLANZAPINE
     Indication: AGGRESSION
     Dosage: DOSE INCREASED UP TO 30 MG
     Route: 065

REACTIONS (2)
  - Delirium [Recovered/Resolved]
  - Hyperammonaemic encephalopathy [Recovered/Resolved]
